FAERS Safety Report 4725483-9 (Version None)
Quarter: 2005Q3

REPORT INFORMATION
  Report Type: 
  Country: None (occurrence: None)
  Receive Date: 20050727
  Receipt Date: 20050718
  Transmission Date: 20060218
  Serious: Yes (Other)
  Sender: FDA-Public Use
  Company Number: PHFR2005GB02485

PATIENT
  Age: 26 Year
  Sex: 0

DRUGS (1)
  1. TERBINAFINE [Suspect]
     Indication: NAIL TINEA
     Dosage: 250MG/DAY
     Route: 048
     Dates: start: 20050519, end: 20050610

REACTIONS (3)
  - INFLUENZA LIKE ILLNESS [None]
  - LYMPHOCYTE COUNT DECREASED [None]
  - NEUTROPENIA [None]
